FAERS Safety Report 15906857 (Version 1)
Quarter: 2019Q1

REPORT INFORMATION
  Report Type: Spontaneous
  Country: US (occurrence: US)
  Receive Date: 20190204
  Receipt Date: 20190204
  Transmission Date: 20190417
  Serious: Yes (Life-Threatening, Hospitalization)
  Sender: FDA-Public Use
  Company Number: None

PATIENT
  Age: 67 Year
  Sex: Female
  Weight: 85.5 kg

DRUGS (3)
  1. VITAMINS [Concomitant]
     Active Substance: VITAMINS
  2. PROTEIN POWDER [Concomitant]
  3. QUINAPRIL. [Suspect]
     Active Substance: QUINAPRIL
     Indication: HYPERTENSION
     Dosage: ?          QUANTITY:0.5 TABLET(S);?
     Route: 048

REACTIONS (9)
  - Cough [None]
  - Angioedema [None]
  - Bone loss [None]
  - Sleep apnoea syndrome [None]
  - Macroglossia [None]
  - Anaemia [None]
  - Diabetes mellitus [None]
  - Tooth loss [None]
  - Jaw disorder [None]
